FAERS Safety Report 16144008 (Version 1)
Quarter: 2019Q2

REPORT INFORMATION
  Report Type: Spontaneous
  Country: BR (occurrence: BR)
  Receive Date: 20190401
  Receipt Date: 20190401
  Transmission Date: 20190711
  Serious: Yes (Other)
  Sender: FDA-Public Use
  Company Number: BR-PFIZER INC-2019137289

PATIENT
  Age: 26 Year
  Sex: Female

DRUGS (1)
  1. LORAX//LORAZEPAM [Suspect]
     Active Substance: LORAZEPAM
     Dosage: UNK

REACTIONS (4)
  - Intentional product use issue [Unknown]
  - Nasopharyngitis [Unknown]
  - Sluggishness [Unknown]
  - Seizure [Not Recovered/Not Resolved]
